FAERS Safety Report 4758757-6 (Version None)
Quarter: 2005Q3

REPORT INFORMATION
  Report Type: 
  Country: None (occurrence: None)
  Receive Date: 20050831
  Receipt Date: 20050831
  Transmission Date: 20060218
  Serious: Yes (Hospitalization, Other)
  Sender: FDA-Public Use
  Company Number: None

PATIENT
  Sex: Female
  Weight: 51.2 kg

DRUGS (3)
  1. CYTARABINE [Suspect]
     Indication: ACUTE MYELOID LEUKAEMIA
     Dosage: SEE IMAGE
     Route: 042
     Dates: start: 20050708, end: 20050715
  2. DAUNORUBICIN HCL [Suspect]
     Dosage: SEE IMAGE
     Route: 042
     Dates: start: 20050708, end: 20050710
  3. CYTARABINE [Suspect]
     Dosage: SEE IMAGE
     Route: 042
     Dates: start: 20050708, end: 20050710

REACTIONS (7)
  - DIVERTICULITIS [None]
  - INTESTINAL OBSTRUCTION [None]
  - NEUTROPENIC COLITIS [None]
  - PELVIC ABSCESS [None]
  - PERITONITIS [None]
  - SMALL INTESTINAL PERFORATION [None]
  - STAPHYLOCOCCAL SEPSIS [None]
